FAERS Safety Report 10097262 (Version 2)
Quarter: 2014Q2

REPORT INFORMATION
  Report Type: Spontaneous
  Country: DE (occurrence: DE)
  Receive Date: 20140422
  Receipt Date: 20140521
  Transmission Date: 20141212
  Serious: Yes (Other)
  Sender: FDA-Public Use
  Company Number: DE-AMGEN-DEUSP2014027932

PATIENT
  Age: 56 Year
  Sex: Female
  Weight: 83 kg

DRUGS (2)
  1. XGEVA [Suspect]
     Indication: METASTASES TO BONE
     Dosage: 120 MG, Q4WK
     Route: 058
     Dates: start: 20130510
  2. HERCEPTIN [Concomitant]
     Indication: BREAST CANCER METASTATIC
     Dosage: 2 MG/KG, Q2WK
     Route: 042
     Dates: start: 200408, end: 20140424

REACTIONS (1)
  - Diabetes mellitus [Not Recovered/Not Resolved]
